FAERS Safety Report 25980107 (Version 1)
Quarter: 2025Q4

REPORT INFORMATION
  Report Type: Spontaneous
  Country: US (occurrence: US)
  Receive Date: 20251030
  Receipt Date: 20251030
  Transmission Date: 20260117
  Serious: Yes (Death, Hospitalization)
  Sender: LIQUIDIA TECHNOLOGIES
  Company Number: US-LIQUIDIA TECHNOLOGIES, INC.-LIQ-2025-000681

PATIENT

DRUGS (6)
  1. YUTREPIA [Suspect]
     Active Substance: TREPROSTINIL SODIUM
     Indication: Pulmonary arterial hypertension
     Dosage: 53 MICROGRAM, QID (INHALE 2 BREATHS PER CAPSULE)
     Route: 055
     Dates: start: 202509, end: 202509
  2. YUTREPIA [Suspect]
     Active Substance: TREPROSTINIL SODIUM
     Indication: Pulmonary arterial hypertension
     Dosage: 79.5 MICROGRAM, QID (INHALE 2-4 BREATHS PER CAPSULE)
     Route: 055
     Dates: start: 202509, end: 202509
  3. YUTREPIA [Suspect]
     Active Substance: TREPROSTINIL SODIUM
     Indication: Pulmonary arterial hypertension
     Dosage: 132.5 MICROGRAM (53MCG +79.5 MCG), QID (INHALE 2 BREATHS PER CAPSULE)
     Route: 055
     Dates: start: 2025, end: 2025
  4. YUTREPIA [Suspect]
     Active Substance: TREPROSTINIL SODIUM
     Dosage: 132.5 MICROGRAM (53MCG +79.5 MCG), QID (INHALE 2 BREATHS PER CAPSULE)
     Route: 055
     Dates: start: 2025, end: 2025
  5. YUTREPIA [Suspect]
     Active Substance: TREPROSTINIL SODIUM
     Indication: Pulmonary arterial hypertension
     Dosage: 212 MICROGRAM, QID
     Route: 055
     Dates: start: 202510, end: 202510
  6. COUMADIN [Concomitant]
     Active Substance: WARFARIN SODIUM
     Indication: Product used for unknown indication
     Dosage: 53 MILLIGRAM, QD
     Route: 065

REACTIONS (4)
  - Death [Fatal]
  - Dyspnoea [Unknown]
  - International normalised ratio increased [Unknown]
  - Flushing [Unknown]

NARRATIVE: CASE EVENT DATE: 20250101
